FAERS Safety Report 7740969-0 (Version None)
Quarter: 2011Q3

REPORT INFORMATION
  Report Type: 
  Country: None (occurrence: None)
  Receive Date: 20110909
  Receipt Date: 20110901
  Transmission Date: 20111222
  Serious: Yes (Hospitalization)
  Sender: FDA-Public Use
  Company Number: US-BAYER-201038290NA

PATIENT
  Age: 28 Year
  Sex: Female
  Weight: 58.957 kg

DRUGS (16)
  1. PRILOSEC [Concomitant]
  2. INDERAL [Concomitant]
  3. CELEXA [Concomitant]
  4. ASCORBIC ACID [Concomitant]
  5. YASMIN [Suspect]
     Indication: PRODUCT USED FOR UNKNOWN INDICATION
  6. ZANAFLEX [Concomitant]
  7. NSAID'S [Concomitant]
  8. TAGAMET [Concomitant]
  9. PHENERGAN HCL [Concomitant]
     Dosage: 25 MG, UNK
  10. FOLIC ACID [Concomitant]
  11. KLONOPIN [Concomitant]
  12. TRAZODONE HCL [Concomitant]
  13. ACETAMINOPHEN [Concomitant]
     Dosage: 500 MG, UNK
  14. YAZ [Suspect]
     Indication: PREMENSTRUAL SYNDROME
     Dosage: UNK
     Route: 048
  15. YAZ [Suspect]
  16. ROBAXIN [Concomitant]

REACTIONS (6)
  - DEPRESSION [None]
  - POST-TRAUMATIC STRESS DISORDER [None]
  - JUGULAR VEIN THROMBOSIS [None]
  - ANXIETY [None]
  - DEEP VEIN THROMBOSIS [None]
  - AXILLARY VEIN THROMBOSIS [None]
